FAERS Safety Report 8416936-0 (Version None)
Quarter: 2012Q2

REPORT INFORMATION
  Report Type: 
  Country: None (occurrence: None)
  Receive Date: 20120606
  Receipt Date: 20120605
  Transmission Date: 20120825
  Serious: Yes (Death)
  Sender: FDA-Public Use
  Company Number: US-PFIZER INC-2008153654

PATIENT
  Age: 40 Year
  Sex: Male

DRUGS (6)
  1. ACETAMINOPHEN AND HYDROCODONE BITARTRATE [Suspect]
  2. COCAINE [Suspect]
  3. ETHANOL [Suspect]
  4. VERAPAMIL HCL [Suspect]
     Route: 048
  5. POTASSIUM CANRENOATE [Suspect]
  6. FENTANYL CITRATE [Suspect]

REACTIONS (3)
  - COMPLETED SUICIDE [None]
  - CARDIAC ARREST [None]
  - RESPIRATORY ARREST [None]
